FAERS Safety Report 5562468-7 (Version None)
Quarter: 2007Q4

REPORT INFORMATION
  Report Type: 
  Country: None (occurrence: None)
  Receive Date: 20071215
  Receipt Date: 20070119
  Transmission Date: 20080405
  Serious: No
  Sender: FDA-Public Use
  Company Number: US-AMGEN-US207713

PATIENT
  Sex: Male
  Weight: 104 kg

DRUGS (17)
  1. ENBREL [Suspect]
     Indication: PSORIATIC ARTHROPATHY
     Route: 058
     Dates: start: 20030101
  2. AMBIEN [Concomitant]
     Route: 048
     Dates: start: 20051017
  3. ASPIRIN [Concomitant]
     Route: 048
     Dates: start: 20050308
  4. BENICAR [Concomitant]
     Route: 048
     Dates: start: 20070216
  5. CARDURA [Concomitant]
     Route: 048
     Dates: start: 20050607
  6. CELEBREX [Concomitant]
     Route: 048
     Dates: start: 20050308
  7. GLIMEPIRIDE [Concomitant]
     Route: 048
     Dates: start: 20070216
  8. MAGNESIUM GLUCONATE [Concomitant]
     Route: 048
     Dates: start: 20060419
  9. MAGNESIUM OXIDE [Concomitant]
     Route: 048
     Dates: start: 20060619
  10. NEXIUM [Concomitant]
     Route: 048
     Dates: start: 20050308
  11. OXYCONTIN [Concomitant]
     Route: 048
     Dates: start: 20050308
  12. PLAVIX [Concomitant]
     Route: 048
     Dates: start: 20050308
  13. PRAVACHOL [Concomitant]
     Route: 048
     Dates: start: 20050308
  14. PROPRANOLOL [Concomitant]
     Route: 048
     Dates: start: 20050308
  15. SYNTHROID [Concomitant]
     Route: 048
     Dates: start: 20051017
  16. CEREFOLIN [Concomitant]
     Route: 048
     Dates: start: 20050419
  17. METHOTREXATE [Concomitant]
     Route: 048

REACTIONS (12)
  - AMNESIA [None]
  - ARTHRALGIA [None]
  - ATAXIA [None]
  - BLOOD CREATININE INCREASED [None]
  - DRUG HYPERSENSITIVITY [None]
  - FATIGUE [None]
  - INJECTION SITE PAIN [None]
  - NASOPHARYNGITIS [None]
  - PSORIATIC ARTHROPATHY [None]
  - PYREXIA [None]
  - VOMITING [None]
  - WEIGHT DECREASED [None]
